FAERS Safety Report 4283673-6 (Version None)
Quarter: 2004Q1

REPORT INFORMATION
  Report Type: 
  Country: None (occurrence: None)
  Receive Date: 20040202
  Receipt Date: 20040112
  Transmission Date: 20041129
  Serious: Yes (Hospitalization)
  Sender: FDA-Public Use
  Company Number: UA-BRISTOL-MYERS SQUIBB COMPANY-12478574

PATIENT
  Age: 53 Year
  Sex: Female

DRUGS (1)
  1. METFORMIN HCL [Suspect]
     Indication: DIABETES MELLITUS
     Dosage: 2000MG DAILY FOR 4 WEEKS THEN INCREASED TO 2500MG
     Route: 048
     Dates: start: 20031106, end: 20031203

REACTIONS (7)
  - ABDOMINAL PAIN [None]
  - CHOLECYSTITIS [None]
  - CHOLELITHIASIS [None]
  - CHROMATURIA [None]
  - FAECES PALE [None]
  - JAUNDICE CHOLESTATIC [None]
  - PANCREATIC DISORDER [None]
